FAERS Safety Report 5760364-3 (Version None)
Quarter: 2008Q2

REPORT INFORMATION
  Report Type: 
  Country: None (occurrence: None)
  Receive Date: 20080602
  Receipt Date: 20080519
  Transmission Date: 20081010
  Serious: Yes (Hospitalization)
  Sender: FDA-Public Use
  Company Number: 2008BI012824

PATIENT
  Age: 34 Year
  Sex: Female

DRUGS (2)
  1. AVONEX [Suspect]
     Indication: MULTIPLE SCLEROSIS
     Dosage: 30 UG;QW;IM
     Route: 030
  2. GLYCERINE SUPPOSITORY [Concomitant]

REACTIONS (10)
  - BLISTER [None]
  - FEAR [None]
  - FORMICATION [None]
  - GASTRIC DISORDER [None]
  - MALAISE [None]
  - ORAL INTAKE REDUCED [None]
  - PARAESTHESIA [None]
  - URINARY INCONTINENCE [None]
  - URINARY TRACT INFECTION [None]
  - WEIGHT DECREASED [None]
